FAERS Safety Report 4462284-3 (Version None)
Quarter: 2004Q3

REPORT INFORMATION
  Report Type: 
  Country: None (occurrence: None)
  Receive Date: 20040929
  Receipt Date: 20040917
  Transmission Date: 20050211
  Serious: Yes (Hospitalization)
  Sender: FDA-Public Use
  Company Number: US-BRISTOL-MYERS SQUIBB COMPANY-12706420

PATIENT
  Age: 43 Year
  Sex: Male
  Weight: 75 kg

DRUGS (4)
  1. PRINCIPEN '250' [Suspect]
     Indication: ARTHROPOD BITE
     Route: 048
     Dates: start: 20030413
  2. TETANUS VACCINE [Concomitant]
     Dates: start: 20030101
  3. TOPROL-XL [Concomitant]
     Dosage: ONGOING FOR 6-12 MONTHS PRIOR TO STARTING AMPICILLIN THERAPY
  4. TRILEPTAL [Concomitant]
     Dosage: ONGOING 6-12 MONTHS PRIOR TO STARTING AMPICILLIN THERAPY

REACTIONS (2)
  - BLOOD PRESSURE INCREASED [None]
  - TINNITUS [None]
